FAERS Safety Report 7748976-9 (Version None)
Quarter: 2011Q3

REPORT INFORMATION
  Report Type: 
  Country: None (occurrence: None)
  Receive Date: 20110909
  Receipt Date: 20110825
  Transmission Date: 20111222
  Serious: Yes (Death, Life-Threatening, Other)
  Sender: FDA-Public Use
  Company Number: US-2011-10050

PATIENT
  Age: 66 Year
  Sex: Male

DRUGS (52)
  1. ETOPOSIDE [Concomitant]
  2. MIRALAX [Concomitant]
  3. INSULIN ASPART (INSULIN ASPART) [Concomitant]
  4. URSODIOL [Concomitant]
  5. SENNA ALEXANDRIA EXTRACT W/DOCUSATE SODIUM (DOCUSATE SODIUM, SENNOSIDE [Concomitant]
  6. DROPERIDOL [Concomitant]
  7. LORAZEPAM [Concomitant]
  8. FILGRASTIM (FILGRASTIM) [Concomitant]
  9. CHLORHEXIDINE GLUCONATE [Concomitant]
  10. CYCLOPHOSPHAMIDE (CYCLOPHAMIDE) [Concomitant]
  11. INSULIN /00030503/ (INSULIN ZINC SUSPENSION) [Concomitant]
  12. ONDANSETRON [Concomitant]
  13. OMEPRAZOLE [Concomitant]
  14. TEMAZEPAM [Concomitant]
  15. POTASSIUM CHLORIDE [Concomitant]
  16. ALTEPLASE (ALTEPLASE) [Concomitant]
  17. NIACIN [Concomitant]
  18. MESNA [Concomitant]
  19. PROCHLORPERAZINE MALEATE [Concomitant]
  20. OXYCODONE HCL [Concomitant]
  21. ACETAMINOPHEN [Concomitant]
  22. BISACODYL (BISACODYL) [Concomitant]
  23. LEVETIRACETAM [Concomitant]
  24. FENTANYL CITRATE [Concomitant]
  25. MIDAZOLAM HYDROCHLORIDE [Concomitant]
  26. MAGNESIUM SULFATE [Concomitant]
  27. TRIMETHOPRIM [Concomitant]
  28. VALACYCLOVIR HYDROCHLORIDE (VALACICLOVIR HYDROCHLORIDE) [Concomitant]
  29. MORPHINE [Concomitant]
  30. MAGNESIUM SULPHATE /00167401/ (MAGNESIUM SULPHATE) [Concomitant]
  31. MICAFUNGIN (MICAFUNGIN) [Concomitant]
  32. ASPIRIN [Concomitant]
  33. METFORMIN HYDROCHLORIDE [Concomitant]
  34. METRONIDAZOLE [Concomitant]
  35. DOPAMINE (DOPAMINE HYDROCHLORIDE HYDROCHLORIDE) [Concomitant]
  36. GLIPIZIDE [Concomitant]
  37. SIMVASTATIN (SIMVASSTATIN) [Concomitant]
  38. LISINOPRIL /00894002/ (LISINOPRIL DIHYDRATE) [Concomitant]
  39. INSULIN GLARGINE (INSULIN GLARGINE) [Concomitant]
  40. CIPROFLOXACIN [Concomitant]
  41. FLUCONAZOLE [Concomitant]
  42. NOREPINEPHRINE (NOREPINEPHRINE BITARTRATE) [Concomitant]
  43. BUSULFAN [Suspect]
     Indication: LYMPHOMA
     Dosage: 65 MG MILLIGRAM(S), DAILY DOSE, INTRAVENOUS 370 MG MILLIGRAM(S), DAILY DOSE, INTRAVENOUS
     Route: 042
     Dates: start: 20110119, end: 20110122
  44. BUSULFAN [Suspect]
     Indication: LYMPHOMA
     Dosage: 65 MG MILLIGRAM(S), DAILY DOSE, INTRAVENOUS 370 MG MILLIGRAM(S), DAILY DOSE, INTRAVENOUS
     Route: 042
     Dates: start: 20110113, end: 20110113
  45. VERAPAMIL [Concomitant]
  46. ALLOPURINOL [Concomitant]
  47. ACYCLOVIR [Concomitant]
  48. DEXAMETHASONE [Concomitant]
  49. HYDROCORTONE [Concomitant]
  50. HYDROCHOROTHIAZIDE (HYDROCHLOROTHIAZIDE) [Concomitant]
  51. ALBUMIN (HUMAN) [Concomitant]
  52. ALBUTEROL SULFATE AUTOHALER [Concomitant]

REACTIONS (10)
  - FEBRILE NEUTROPENIA [None]
  - HYPOXIC-ISCHAEMIC ENCEPHALOPATHY [None]
  - ASPIRATION [None]
  - HYPOALBUMINAEMIA [None]
  - SEPSIS [None]
  - UNRESPONSIVE TO STIMULI [None]
  - CARDIO-RESPIRATORY ARREST [None]
  - RESPIRATORY FAILURE [None]
  - PULSELESS ELECTRICAL ACTIVITY [None]
  - BRADYCARDIA [None]
